FAERS Safety Report 15244876 (Version 1)
Quarter: 2018Q3

REPORT INFORMATION
  Report Type: Spontaneous
  Country: US (occurrence: US)
  Receive Date: 20180713
  Receipt Date: 20180713
  Transmission Date: 20181010
  Serious: Yes (Death, Life-Threatening, Hospitalization, Disabling)
  Sender: FDA-Public Use
  Company Number: None

PATIENT
  Age: 65 Year
  Sex: Female
  Weight: 81.65 kg

DRUGS (1)
  1. HUMIRA [Suspect]
     Active Substance: ADALIMUMAB
     Indication: RHEUMATOID ARTHRITIS
     Route: 006

REACTIONS (8)
  - Dry mouth [None]
  - Blood potassium abnormal [None]
  - Pancreatic carcinoma [None]
  - Malignant neoplasm progression [None]
  - Metastases to central nervous system [None]
  - Diarrhoea [None]
  - Metastases to lung [None]
  - Nausea [None]

NARRATIVE: CASE EVENT DATE: 201410
